FAERS Safety Report 6234332-1 (Version None)
Quarter: 2009Q2

REPORT INFORMATION
  Report Type: 
  Country: None (occurrence: None)
  Receive Date: 20090616
  Receipt Date: 20090616
  Transmission Date: 20091009
  Serious: Yes (Life-Threatening)
  Sender: FDA-Public Use
  Company Number: None

PATIENT
  Age: 62 Year
  Sex: Male
  Weight: 68.0396 kg

DRUGS (1)
  1. GABAPENTIN [Suspect]
     Indication: SPINAL COLUMN STENOSIS
     Dosage: 600MG  1 TIME PER DAY PO
     Route: 048
     Dates: start: 20030601, end: 20090611

REACTIONS (6)
  - ABDOMINAL DISCOMFORT [None]
  - FEELING ABNORMAL [None]
  - GAIT DISTURBANCE [None]
  - PALPITATIONS [None]
  - PRODUCT QUALITY ISSUE [None]
  - TREMOR [None]
